FAERS Safety Report 5067432-2 (Version None)
Quarter: 2006Q3

REPORT INFORMATION
  Report Type: 
  Country: None (occurrence: None)
  Receive Date: 20060731
  Receipt Date: 20060714
  Transmission Date: 20061208
  Serious: Yes (Hospitalization)
  Sender: FDA-Public Use
  Company Number: US200605005203

PATIENT
  Sex: Female

DRUGS (5)
  1. ZYPREXA [Suspect]
     Indication: BIPOLAR DISORDER
     Dosage: 40 MG, DAILY (1/D); SEE IMAGE
     Dates: start: 19950101
  2. ZYPREXA [Suspect]
     Indication: BIPOLAR DISORDER
     Dosage: 40 MG, DAILY (1/D); SEE IMAGE
     Dates: start: 19950101
  3. DEPAKOTE [Concomitant]
  4. FOSAMAX /ITA/ (ALENDRONATE SODIUM) [Concomitant]
  5. WELLBUTRIN [Concomitant]

REACTIONS (4)
  - FEELING ABNORMAL [None]
  - PRESCRIBED OVERDOSE [None]
  - PSYCHOTIC DISORDER [None]
  - STUBBORNNESS [None]
